FAERS Safety Report 15631630 (Version 3)
Quarter: 2018Q4

REPORT INFORMATION
  Report Type: Spontaneous
  Country: AT (occurrence: AT)
  Receive Date: 20181119
  Receipt Date: 20181206
  Transmission Date: 20190205
  Serious: Yes (Death, Life-Threatening, Hospitalization, Other)
  Sender: FDA-Public Use
  Company Number: AT-CELGENEUS-AUT-20181010931

PATIENT
  Age: 91 Year
  Sex: Female

DRUGS (36)
  1. SICCAPROTECT [Concomitant]
     Indication: PROPHYLAXIS
     Route: 061
     Dates: start: 20171026
  2. THOMAPYRIN [Concomitant]
     Indication: NECK PAIN
  3. PASSEDAN [Concomitant]
     Indication: INSOMNIA
     Route: 048
     Dates: start: 20171128
  4. DEXPANTHENOL. [Concomitant]
     Active Substance: DEXPANTHENOL
     Indication: INFECTION PROPHYLAXIS
     Dosage: 3 DOSAGE FORMS
     Route: 002
     Dates: start: 20171103
  5. AMPHOTERICIN B. [Concomitant]
     Active Substance: AMPHOTERICIN B
     Indication: INFECTION PROPHYLAXIS
     Dosage: 6 DOSAGE FORMS
     Route: 048
     Dates: start: 20171103
  6. DICLOSTAD [Concomitant]
     Indication: NECK PAIN
     Dosage: 3 DOSAGE FORMS
     Route: 061
     Dates: start: 20180418
  7. NEUROBION FORTE [Concomitant]
     Active Substance: CYANOCOBALAMIN\PYRIDOXINE HYDROCHLORIDE\THIAMINE DISULFIDE
     Indication: NUTRITIONAL SUPPLEMENTATION
     Dosage: 1 TABLET
     Route: 048
     Dates: start: 20180208
  8. LASIX [Concomitant]
     Active Substance: FUROSEMIDE
     Indication: PROPHYLAXIS
     Dosage: 20 MILLIGRAM
     Route: 048
     Dates: start: 20180125
  9. DESLORATADIN [Concomitant]
     Active Substance: DESLORATADINE
     Indication: PRURITUS
     Route: 048
     Dates: start: 20171101
  10. DRONABINOL. [Concomitant]
     Active Substance: DRONABINOL
     Indication: DECREASED APPETITE
     Dosage: 6 DROPS
     Route: 048
     Dates: start: 20180123
  11. LEVOLAC [Concomitant]
     Active Substance: LACTULOSE
     Indication: CONSTIPATION
     Route: 048
     Dates: start: 20180509
  12. PANTOLOC [Concomitant]
     Active Substance: PANTOPRAZOLE SODIUM
     Indication: GASTRITIS PROPHYLAXIS
     Dosage: 40 MILLIGRAM
     Route: 048
     Dates: start: 20180212
  13. PANTOPRAZOL [Concomitant]
     Active Substance: PANTOPRAZOLE SODIUM
     Indication: GASTROINTESTINAL HAEMORRHAGE
     Dosage: 40 MILLIGRAM
     Route: 048
     Dates: start: 20180124
  14. IBUPROFEN. [Concomitant]
     Active Substance: IBUPROFEN
     Indication: HEADACHE
  15. HALCION [Concomitant]
     Active Substance: TRIAZOLAM
     Indication: INSOMNIA
     Dosage: .25 MILLIGRAM
     Route: 048
     Dates: start: 2012
  16. ZOFRAN [Concomitant]
     Active Substance: ONDANSETRON HYDROCHLORIDE
     Indication: NAUSEA
     Route: 048
     Dates: start: 20171126
  17. VOLTAREN [Concomitant]
     Active Substance: DICLOFENAC SODIUM
     Indication: NECK PAIN
     Route: 048
     Dates: start: 20180120
  18. SIRDALUD [Concomitant]
     Active Substance: TIZANIDINE
     Indication: NECK PAIN
     Dosage: 4 MILLIGRAM
     Route: 048
     Dates: start: 20180610
  19. NOVALGIN (METAMIZOLE SODIUM) [Concomitant]
     Active Substance: METAMIZOLE SODIUM
     Indication: NECK PAIN
     Route: 048
     Dates: start: 20180613
  20. HYDAL RETARD [Concomitant]
     Active Substance: HYDROMORPHONE HYDROCHLORIDE
     Route: 048
     Dates: start: 20180612
  21. IBUPROFEN. [Concomitant]
     Active Substance: IBUPROFEN
     Indication: NECK PAIN
     Route: 048
     Dates: start: 20171025
  22. THOMAPYRIN [Concomitant]
     Indication: HEADACHE
     Route: 048
     Dates: start: 20171030
  23. ANTIFLAT [Concomitant]
     Indication: ABDOMINAL DISTENSION
     Dosage: 150 MILLIGRAM
     Route: 048
     Dates: start: 20171127
  24. CEOLAT [Concomitant]
     Indication: NAUSEA
     Route: 048
     Dates: start: 20180216
  25. HYDAL RETARD [Concomitant]
     Active Substance: HYDROMORPHONE HYDROCHLORIDE
     Indication: NECK PAIN
     Dosage: 4 MILLIGRAM
     Route: 048
     Dates: start: 20180611
  26. VENETOCLAX. [Concomitant]
     Active Substance: VENETOCLAX
     Indication: ACUTE MYELOID LEUKAEMIA
     Route: 065
  27. SIMVASTATIN. [Concomitant]
     Active Substance: SIMVASTATIN
     Indication: HYPERLIPIDAEMIA
     Dosage: 40 MILLIGRAM
     Route: 048
     Dates: start: 2012
  28. MEXALEN [Concomitant]
     Active Substance: ACETAMINOPHEN
     Indication: NECK PAIN
  29. FENISTIL [Concomitant]
     Active Substance: DIMETHINDENE
     Indication: PRURITUS
     Route: 048
     Dates: start: 20171101
  30. AZACITIDINE. [Suspect]
     Active Substance: AZACITIDINE
     Indication: ACUTE MYELOID LEUKAEMIA
     Dosage: 75 MILLIGRAM/SQ. METER
     Route: 058
     Dates: start: 20171027
  31. CANDESARTAN CILEXETIL AND HYDROCHLOROTHIAZIDE [Concomitant]
     Active Substance: CANDESARTAN CILEXETIL\HYDROCHLOROTHIAZIDE
     Indication: HYPERTENSION
     Dosage: 16MG/12.5 MILLIGRAM
     Route: 048
     Dates: start: 20180119
  32. TRITTICO [Concomitant]
     Active Substance: TRAZODONE HYDROCHLORIDE
     Indication: INSOMNIA
     Dosage: 150 MILLIGRAM
     Route: 048
     Dates: start: 2012
  33. MEXALEN [Concomitant]
     Active Substance: ACETAMINOPHEN
     Indication: HEADACHE
     Route: 048
     Dates: start: 20171029
  34. PANTOLOC [Concomitant]
     Active Substance: PANTOPRAZOLE SODIUM
     Indication: GASTRITIS
  35. VOLTAREN [Concomitant]
     Active Substance: DICLOFENAC SODIUM
     Dosage: 2 DOSAGE FORMS
     Route: 061
     Dates: start: 20171123
  36. SERACTIL [Concomitant]
     Active Substance: DEXIBUPROFEN
     Indication: HIP FRACTURE
     Route: 048
     Dates: start: 20180903

REACTIONS (2)
  - Subdural haematoma [Fatal]
  - Thrombocytopenia [Unknown]

NARRATIVE: CASE EVENT DATE: 20181022
